FAERS Safety Report 22232224 (Version 1)
Quarter: 2023Q2

REPORT INFORMATION
  Report Type: Spontaneous
  Country: US (occurrence: None)
  Receive Date: 20230420
  Receipt Date: 20230420
  Transmission Date: 20230721
  Serious: No
  Sender: FDA-Public Use
  Company Number: US-ROCHE-3216322

PATIENT
  Age: 73 Year
  Sex: Female
  Weight: 109.41 kg

DRUGS (8)
  1. ESBRIET [Suspect]
     Active Substance: PIRFENIDONE
     Indication: Idiopathic pulmonary fibrosis
     Dosage: 3PILLS, ONGOING: YES
     Route: 048
     Dates: start: 20220830
  2. LEVOTHYROXINE [Concomitant]
     Active Substance: LEVOTHYROXINE
     Dosage: 125 MCG
  3. ELIQUIS [Concomitant]
     Active Substance: APIXABAN
  4. ATENOLOL [Concomitant]
     Active Substance: ATENOLOL
  5. DILTIAZEM [Concomitant]
     Active Substance: DILTIAZEM
  6. ATORVASTATIN [Concomitant]
     Active Substance: ATORVASTATIN
     Dosage: EVERY OTHER DAY
  7. METFORMIN [Concomitant]
     Active Substance: METFORMIN HYDROCHLORIDE
  8. PANTOPRAZOLE [Concomitant]
     Active Substance: PANTOPRAZOLE

REACTIONS (2)
  - Gastric disorder [Unknown]
  - Feeling abnormal [Unknown]
